FAERS Safety Report 5219468-6 (Version None)
Quarter: 2006Q4

REPORT INFORMATION
  Report Type: 
  Country: None (occurrence: None)
  Receive Date: 20061201
  Receipt Date: 20060718
  Transmission Date: 20070319
  Serious: No
  Sender: FDA-Public Use
  Company Number: 2006PV017799

PATIENT
  Age: 75 Year
  Sex: Female
  Weight: 136.0791 kg

DRUGS (6)
  1. BYETTA [Suspect]
     Indication: DIABETES MELLITUS
     Dosage: SEE IMAGE
     Route: 058
     Dates: start: 20060401, end: 20060501
  2. BYETTA [Suspect]
     Indication: DIABETES MELLITUS
     Dosage: SEE IMAGE
     Route: 058
     Dates: start: 20060501
  3. HUMULIN N [Concomitant]
  4. NOVOLOG [Concomitant]
  5. LOPRESSOR [Concomitant]
  6. LASIX [Concomitant]

REACTIONS (1)
  - MICTURITION FREQUENCY DECREASED [None]
